FAERS Safety Report 9510661 (Version 1)
Quarter: 2013Q3

REPORT INFORMATION
  Report Type: Spontaneous
  Country: TR (occurrence: TR)
  Receive Date: 20130909
  Receipt Date: 20130909
  Transmission Date: 20140515
  Serious: Yes (Other)
  Sender: FDA-Public Use
  Company Number: TR-B.I. PHARMACEUTICALS,INC./RIDGEFIELD-2013-BI-28009TK

PATIENT
  Age: 77 Year
  Sex: Female

DRUGS (4)
  1. PRADAXA [Suspect]
     Indication: ATRIAL FIBRILLATION
     Dosage: 150 MG
     Route: 048
     Dates: start: 20130612
  2. PAVTIDE [Concomitant]
     Indication: CHRONIC OBSTRUCTIVE PULMONARY DISEASE
     Route: 048
     Dates: start: 20130618
  3. DILTIZEM SR [Concomitant]
     Indication: HYPERTENSION
     Dosage: STRENGTH:120
     Dates: start: 20130612
  4. DILTIZEM SR [Concomitant]
     Indication: ATRIAL FIBRILLATION

REACTIONS (1)
  - Dermatitis [Recovered/Resolved]
